FAERS Safety Report 19977926 (Version 1)
Quarter: 2021Q4

REPORT INFORMATION
  Report Type: Spontaneous
  Country: US (occurrence: US)
  Receive Date: 20211020
  Receipt Date: 20211020
  Transmission Date: 20220303
  Serious: No
  Sender: FDA-Public Use
  Company Number: US-PFIZER INC-2021437216

PATIENT
  Age: 47 Year
  Sex: Female
  Weight: 129.25 kg

DRUGS (14)
  1. BOSULIF [Suspect]
     Active Substance: BOSUTINIB MONOHYDRATE
     Dosage: 400 MG, DAILY
     Route: 048
     Dates: start: 20210224
  2. AMITRIPTYLINE [Concomitant]
     Active Substance: AMITRIPTYLINE
     Dosage: 100 MG
  3. AMLODIPINE BESYLATE [Concomitant]
     Active Substance: AMLODIPINE BESYLATE
     Dosage: 10 MG
  4. CALCIUM\CHOLECALCIFEROL\MINERALS [Concomitant]
     Active Substance: CALCIUM\CHOLECALCIFEROL\MINERALS
     Dosage: UNK
  5. ESTRADIOL [Concomitant]
     Active Substance: ESTRADIOL
     Dosage: UNK, ONCE WEEKLY
  6. FENOFIBRATE [Concomitant]
     Active Substance: FENOFIBRATE
     Dosage: 120 MG
  7. GABAPENTIN [Concomitant]
     Active Substance: GABAPENTIN
     Dosage: 100 MG
  8. GLUCOSAMINE CHONDROITIN SULFATE [Concomitant]
     Dosage: UNK
  9. ACETAMINOPHEN\HYDROCODONE [Concomitant]
     Active Substance: ACETAMINOPHEN\HYDROCODONE
     Dosage: UNK
  10. MELOXICAM [Concomitant]
     Active Substance: MELOXICAM
     Dosage: 15 MG
  11. POTASSIUM [Concomitant]
     Active Substance: POTASSIUM
     Dosage: UNK
  12. PROMETHAZINE HYDROCHLORIDE [Concomitant]
     Active Substance: PROMETHAZINE HYDROCHLORIDE
     Dosage: 12.5 MG
  13. GAS-X [Concomitant]
     Active Substance: DIMETHICONE
     Dosage: 125 MG
  14. ARMOUR THYROID [Concomitant]
     Active Substance: THYROID, PORCINE
     Dosage: 120 MG

REACTIONS (6)
  - Stomatitis [Unknown]
  - Diarrhoea [Unknown]
  - Constipation [Unknown]
  - Memory impairment [Unknown]
  - Renal function test abnormal [Unknown]
  - Fatigue [Unknown]
